FAERS Safety Report 6956502-7 (Version None)
Quarter: 2010Q3

REPORT INFORMATION
  Report Type: 
  Country: None (occurrence: None)
  Receive Date: 20100830
  Receipt Date: 20100820
  Transmission Date: 20110219
  Serious: Yes (Other)
  Sender: FDA-Public Use
  Company Number: US-AMGEN-QUU432920

PATIENT
  Sex: Male
  Weight: 131.2 kg

DRUGS (8)
  1. NPLATE [Suspect]
     Indication: IDIOPATHIC THROMBOCYTOPENIC PURPURA
     Dates: start: 20090827, end: 20100506
  2. ASPIRIN [Concomitant]
  3. METFORMIN HCL [Concomitant]
  4. DIGOXIN [Concomitant]
  5. METOPROLOL TARTRATE [Concomitant]
  6. CALCIUM [Concomitant]
  7. ALLOPURINOL [Concomitant]
  8. COUMADIN [Concomitant]

REACTIONS (2)
  - CORONARY ARTERY DISEASE [None]
  - MITRAL VALVE INCOMPETENCE [None]
